FAERS Safety Report 4944904-X (Version None)
Quarter: 2006Q1

REPORT INFORMATION
  Report Type: 
  Country: None (occurrence: None)
  Receive Date: 20060126
  Receipt Date: 20050928
  Transmission Date: 20060701
  Serious: Yes (Hospitalization, Other)
  Sender: FDA-Public Use
  Company Number: USA041184078

PATIENT
  Age: 82 Year
  Sex: Female
  Weight: 45 kg

DRUGS (6)
  1. FORTEO [Suspect]
     Indication: OSTEOPOROSIS
     Dosage: 20UG DAY
     Dates: start: 20041022, end: 20050603
  2. LORCET-HD [Concomitant]
  3. FLINTSTONES [Concomitant]
  4. CALCIUM GLUCONATE [Concomitant]
  5. ASPIRIN [Concomitant]
  6. VITAMIN D [Concomitant]

REACTIONS (19)
  - ANOREXIA [None]
  - ANXIETY [None]
  - BLOOD CALCIUM INCREASED [None]
  - BONE DENSITY DECREASED [None]
  - CHEST PAIN [None]
  - CONTUSION [None]
  - FATIGUE [None]
  - FEELING ABNORMAL [None]
  - HEART RATE INCREASED [None]
  - HYPERCALCAEMIA [None]
  - HYPOAESTHESIA [None]
  - INSOMNIA [None]
  - NAUSEA [None]
  - PAIN [None]
  - PALPITATIONS [None]
  - POSTURE ABNORMAL [None]
  - THROMBOSIS [None]
  - VITAMIN D INCREASED [None]
  - WEIGHT DECREASED [None]
